FAERS Safety Report 19736071 (Version 7)
Quarter: 2024Q4

REPORT INFORMATION
  Report Type: Report from Study
  Country: EG (occurrence: EG)
  Receive Date: 20210823
  Receipt Date: 20241003
  Transmission Date: 20250114
  Serious: Yes (Other)
  Sender: NOVARTIS
  Company Number: NVSC2021EG188068

PATIENT
  Age: 20 Year
  Sex: Male
  Weight: 65 kg

DRUGS (5)
  1. COSENTYX [Suspect]
     Active Substance: SECUKINUMAB
     Indication: Psoriasis
     Dosage: 150 MG
     Route: 058
     Dates: start: 201810, end: 202103
  2. COSENTYX [Suspect]
     Active Substance: SECUKINUMAB
     Dosage: 150 MG, QMO
     Route: 058
     Dates: start: 202106
  3. COSENTYX [Suspect]
     Active Substance: SECUKINUMAB
     Dosage: 150 MG, PEN EVERY WEEK FOR 4 WEEKS, THEN 1 PREFILLED PEN EVERY MONTH
     Route: 058
     Dates: start: 202405
  4. ACITRETIN [Concomitant]
     Active Substance: ACITRETIN
     Indication: Product used for unknown indication
     Dosage: 25 MG, BID
     Route: 065
     Dates: start: 2018
  5. NEORAL [Concomitant]
     Active Substance: CYCLOSPORINE
     Indication: Psoriasis
     Dosage: 2 DOSAGE FORM, QD
     Route: 065

REACTIONS (7)
  - Mental disorder [Not Recovered/Not Resolved]
  - Influenza [Recovered/Resolved]
  - Psoriasis [Recovering/Resolving]
  - Staphylococcal infection [Recovered/Resolved]
  - Drug ineffective [Not Recovered/Not Resolved]
  - Off label use [Not Recovered/Not Resolved]
  - Hepatic enzyme increased [Recovering/Resolving]

NARRATIVE: CASE EVENT DATE: 20210501
